FAERS Safety Report 7516996-5 (Version None)
Quarter: 2011Q2

REPORT INFORMATION
  Report Type: 
  Country: None (occurrence: None)
  Receive Date: 20110526
  Receipt Date: 20110526
  Transmission Date: 20111010
  Serious: No
  Sender: FDA-Public Use
  Company Number: None

PATIENT
  Age: 42 Year
  Sex: Male
  Weight: 49.5 kg

DRUGS (7)
  1. LOPINAVIR/RITONAVIR [Concomitant]
  2. RALTEGRAVIR 400 MG PO BD MERCK [Suspect]
     Indication: CACHEXIA
     Dosage: 400 MG RALTEGRAVIR BD ORAL
     Route: 048
     Dates: start: 20100312, end: 20101101
  3. LAMIVUDINE [Concomitant]
  4. TRIMETHOPRIM + SULFAMETHOXAZOLE [Concomitant]
  5. WARFARIN SODIUM [Concomitant]
  6. FLUCONAZOLE [Concomitant]
  7. ENFUVIRTIDE 90 MG SC BD ROCHE [Suspect]
     Indication: HIV INFECTION
     Dosage: 90 MG BD SC
     Route: 058
     Dates: start: 20100312, end: 20100512

REACTIONS (4)
  - WEIGHT INCREASED [None]
  - PAIN IN EXTREMITY [None]
  - INJECTION SITE REACTION [None]
  - DEEP VEIN THROMBOSIS [None]
